FAERS Safety Report 6254793-1 (Version None)
Quarter: 2009Q3

REPORT INFORMATION
  Report Type: 
  Country: None (occurrence: None)
  Receive Date: 20090702
  Receipt Date: 20090622
  Transmission Date: 20100115
  Serious: Yes (Other)
  Sender: FDA-Public Use
  Company Number: JP-PFIZER INC-2009202093

PATIENT
  Age: 64 Year

DRUGS (3)
  1. GENOTROPIN [Suspect]
     Indication: HYPOPITUITARISM
     Dosage: 0.4 MG, THREE TIMES A WEEK
     Dates: start: 20080709, end: 20090416
  2. CORTRIL [Concomitant]
     Indication: ADRENAL INSUFFICIENCY
     Dosage: UNK
     Route: 048
     Dates: start: 20020401
  3. THYRADIN S [Concomitant]
     Indication: HYPOTHYROIDISM
     Dosage: UNK
     Route: 048
     Dates: start: 20020401

REACTIONS (1)
  - PITUITARY TUMOUR BENIGN [None]
